FAERS Safety Report 11264257 (Version 2)
Quarter: 2015Q3

REPORT INFORMATION
  Report Type: Spontaneous
  Country: US (occurrence: US)
  Receive Date: 20150713
  Receipt Date: 20150721
  Transmission Date: 20151125
  Serious: No
  Sender: FDA-Public Use
  Company Number: US-JNJFOC-20150621152

PATIENT
  Age: 73 Year
  Sex: Female
  Weight: 61.24 kg

DRUGS (1)
  1. SIMPONI [Suspect]
     Active Substance: GOLIMUMAB
     Indication: RHEUMATOID ARTHRITIS
     Route: 058
     Dates: start: 201406

REACTIONS (8)
  - Accidental exposure to product [Unknown]
  - Contusion [Unknown]
  - Underdose [Unknown]
  - Hypoaesthesia [Unknown]
  - Drug dose omission [Unknown]
  - Device malfunction [Unknown]
  - Injection site erythema [Unknown]
  - Arthropathy [Unknown]

NARRATIVE: CASE EVENT DATE: 20150430
